FAERS Safety Report 21515675 (Version 1)
Quarter: 2022Q4

REPORT INFORMATION
  Report Type: Spontaneous
  Country: US (occurrence: None)
  Receive Date: 20221027
  Receipt Date: 20221027
  Transmission Date: 20230112
  Serious: Yes (Hospitalization)
  Sender: FDA-Public Use
  Company Number: None

PATIENT
  Age: 45 Year
  Sex: Female
  Weight: 100.35 kg

DRUGS (3)
  1. MOUNJARO [Suspect]
     Active Substance: TIRZEPATIDE
     Indication: Weight decreased
     Dosage: OTHER QUANTITY : 1 INJECTION(S);?OTHER FREQUENCY : 1/WEEK;?
     Route: 030
     Dates: start: 20221022, end: 20221023
  2. LEXAPRO [Concomitant]
     Active Substance: ESCITALOPRAM OXALATE
  3. WELLBUTRIN [Concomitant]
     Active Substance: BUPROPION HYDROCHLORIDE

REACTIONS (9)
  - Product availability issue [None]
  - Diarrhoea [None]
  - Abdominal pain upper [None]
  - Nausea [None]
  - Dehydration [None]
  - Pain [None]
  - Urinary tract infection [None]
  - Heavy menstrual bleeding [None]
  - Therapy interrupted [None]

NARRATIVE: CASE EVENT DATE: 20221022
